FAERS Safety Report 5601793-8 (Version None)
Quarter: 2008Q1

REPORT INFORMATION
  Report Type: 
  Country: None (occurrence: None)
  Receive Date: 20080124
  Receipt Date: 20080117
  Transmission Date: 20080703
  Serious: Yes (Hospitalization)
  Sender: FDA-Public Use
  Company Number: AU-MERCK-0801AUS00146

PATIENT
  Age: 77 Year
  Sex: Male

DRUGS (4)
  1. FOSAMAX [Suspect]
     Indication: OSTEOPOROSIS
     Route: 065
  2. RAMIPRIL [Concomitant]
     Route: 065
  3. MAGNESIUM (UNSPECIFIED) [Concomitant]
     Route: 065
  4. BETAMETHASONE DIPROPIONATE [Concomitant]
     Route: 065

REACTIONS (1)
  - RECTAL HAEMORRHAGE [None]
